FAERS Safety Report 8443199-2 (Version None)
Quarter: 2012Q2

REPORT INFORMATION
  Report Type: 
  Country: None (occurrence: None)
  Receive Date: 20120617
  Receipt Date: 20120605
  Transmission Date: 20120825
  Serious: Yes (Other)
  Sender: FDA-Public Use
  Company Number: JP-VERTEX PHARMACEUTICALS INC.-AE-2012-008536

PATIENT
  Age: 62 Year
  Sex: Female

DRUGS (6)
  1. RIBAVIRIN [Concomitant]
     Indication: HEPATITIS C
     Route: 048
     Dates: start: 20120307, end: 20120320
  2. RIBAVIRIN [Concomitant]
     Route: 048
     Dates: start: 20120418, end: 20120425
  3. TELAVIC (TELAPREVIR) [Suspect]
     Indication: HEPATITIS C
     Route: 048
     Dates: start: 20120307, end: 20120411
  4. TELAVIC (TELAPREVIR) [Suspect]
     Route: 048
     Dates: start: 20120412, end: 20120416
  5. RIBAVIRIN [Concomitant]
     Route: 048
     Dates: start: 20120321, end: 20120417
  6. PEGINTERFERON ALFA-2B [Concomitant]
     Indication: HEPATITIS C
     Route: 051
     Dates: start: 20120307, end: 20120517

REACTIONS (12)
  - PYREXIA [None]
  - COUGH [None]
  - RETINITIS [None]
  - PRURITUS [None]
  - PSYCHIATRIC SYMPTOM [None]
  - ANAEMIA [None]
  - ABDOMINAL PAIN UPPER [None]
  - RENAL DISORDER [None]
  - DECREASED APPETITE [None]
  - INSOMNIA [None]
  - MALAISE [None]
  - IRRITABILITY [None]
